FAERS Safety Report 9793244 (Version 4)
Quarter: 2014Q2

REPORT INFORMATION
  Report Type: Report from Study
  Country: US (occurrence: US)
  Receive Date: 20140102
  Receipt Date: 20140409
  Transmission Date: 20141212
  Serious: Yes (Hospitalization, Other)
  Sender: FDA-Public Use
  Company Number: US-PFIZER INC-2013369444

PATIENT
  Age: 15 Year
  Sex: Male
  Weight: 88 kg

DRUGS (10)
  1. CRIZOTINIB [Suspect]
     Indication: DESMOPLASTIC SMALL ROUND CELL TUMOUR
     Dosage: 215 MG/M2/DOSE -435 MG OF LIQUID FORMULATION TWICE DAILY X 28 DAYS (BID DAILY)
     Route: 048
     Dates: start: 20131212, end: 20131220
  2. TOPOTECAN HYDROCHLORIDE [Suspect]
     Indication: DESMOPLASTIC SMALL ROUND CELL TUMOUR
     Dosage: 0.75 MG/M2/DOSE DAILY X 5 DAYS
     Route: 042
     Dates: start: 20131213, end: 20131217
  3. CYCLOPHOSPHAMIDE [Suspect]
     Indication: DESMOPLASTIC SMALL ROUND CELL TUMOUR
     Dosage: 250 MG/M2/DOSE DAILY X 5 DAYS
     Route: 042
     Dates: start: 20131213, end: 20131217
  4. ATIVAN [Suspect]
  5. BENADRYL [Suspect]
  6. DRONABINOL [Suspect]
  7. PHENERGAN [Suspect]
  8. SCOPOLAMINE [Suspect]
  9. DEXAMETHASONE [Concomitant]
  10. ZOFRAN [Concomitant]

REACTIONS (2)
  - Dehydration [Recovered/Resolved]
  - Hypoxia [Recovered/Resolved]
